FAERS Safety Report 7964147 (Version 3)
Quarter: 2017Q4

REPORT INFORMATION
  Report Type: Spontaneous
  Country: JP (occurrence: JP)
  Receive Date: 20110527
  Receipt Date: 20171012
  Transmission Date: 20180321
  Serious: Yes (Death, Life-Threatening, Other)
  Sender: FDA-Public Use
  Company Number: JP-BRISTOL-MYERS SQUIBB COMPANY-15769060

PATIENT
  Age: 71 Year
  Sex: Male

DRUGS (1)
  1. TAXOL [Suspect]
     Active Substance: PACLITAXEL
     Indication: GASTRIC CANCER
     Dosage: 1 DF: 100 UNIT NOT SPECIFIED
     Route: 041
     Dates: start: 20100121, end: 20100128

REACTIONS (3)
  - Malignant neoplasm progression [Fatal]
  - Neutropenia [Unknown]
  - Pneumonia [Fatal]

NARRATIVE: CASE EVENT DATE: 20100201
